FAERS Safety Report 21608871 (Version 1)
Quarter: 2022Q4

REPORT INFORMATION
  Report Type: Spontaneous
  Country: US (occurrence: None)
  Receive Date: 20221116
  Receipt Date: 20221116
  Transmission Date: 20230113
  Serious: Yes (Other)
  Sender: FDA-Public Use
  Company Number: None

PATIENT
  Age: 63 Year
  Sex: Female
  Weight: 51.3 kg

DRUGS (12)
  1. PLENVU [Suspect]
     Active Substance: ASCORBIC ACID\POLYETHYLENE GLYCOL 3350\POTASSIUM CHLORIDE\SODIUM ASCORBATE\SODIUM CHLORIDE\SODIUM SU
     Indication: Bowel preparation
     Dosage: OTHER QUANTITY : 2 DOSES;?OTHER FREQUENCY : 2 TIMES FOR PREP;?
     Route: 048
     Dates: start: 20221116, end: 20221116
  2. CELECOXIB [Concomitant]
     Active Substance: CELECOXIB
  3. EVISTA [Concomitant]
     Active Substance: RALOXIFENE HYDROCHLORIDE
  4. QUETIAPINE [Concomitant]
     Active Substance: QUETIAPINE
  5. ROSUVASTATIN [Concomitant]
     Active Substance: ROSUVASTATIN
  6. Effexor XL 150mg [Concomitant]
  7. Acidophilus probiotic.5mg [Concomitant]
  8. calcium 1200mg [Concomitant]
  9. D3 40th [Concomitant]
  10. lutein 10mg [Concomitant]
  11. MINERALS\VITAMINS [Concomitant]
     Active Substance: MINERALS\VITAMINS
  12. melatonin 10mg [Concomitant]

REACTIONS (15)
  - Paraesthesia [None]
  - Paraesthesia [None]
  - Hypoaesthesia [None]
  - Electric shock sensation [None]
  - Cold sweat [None]
  - Nausea [None]
  - Abdominal pain [None]
  - Dizziness [None]
  - Dyspnoea [None]
  - Gait inability [None]
  - Pain [None]
  - Vertigo [None]
  - Vomiting [None]
  - Asthenia [None]
  - Paraesthesia [None]

NARRATIVE: CASE EVENT DATE: 20221116
